FAERS Safety Report 10417827 (Version 2)
Quarter: 2015Q2

REPORT INFORMATION
  Report Type: Spontaneous
  Country: US (occurrence: None)
  Receive Date: 20140610
  Receipt Date: 20150622
  Transmission Date: 20150821
  Serious: Yes (Other)
  Sender: FDA-Public Use
  Company Number: 2014GMK009364

PATIENT
  Age: 46 Year
  Sex: Female

DRUGS (9)
  1. VITAMIN D3 [Concomitant]
     Active Substance: CHOLECALCIFEROL
  2. MOTRIN [Concomitant]
     Active Substance: IBUPROFEN
  3. BENADRYL [Concomitant]
     Active Substance: DIPHENHYDRAMINE HYDROCHLORIDE
  4. LEUPRORELIN ACETATE [Suspect]
     Active Substance: LEUPROLIDE ACETATE
     Indication: ENDOMETRIOSIS
     Dates: start: 20140313
  5. TRAMADOL [Concomitant]
     Active Substance: TRAMADOL
  6. IRON [Concomitant]
     Active Substance: IRON
  7. NORETHINDRONE ACETATE. [Suspect]
     Active Substance: NORETHINDRONE ACETATE
     Indication: ENDOMETRIOSIS
     Route: 048
     Dates: start: 201312
  8. NORETHINDRONE ACETATE. [Suspect]
     Active Substance: NORETHINDRONE ACETATE
     Indication: UTERINE PAIN
     Route: 048
     Dates: start: 201312
  9. TYLENOL /0020001/ (PARACETAMOL) [Concomitant]

REACTIONS (5)
  - Activities of daily living impaired [None]
  - Prescribed overdose [None]
  - Vaginal haemorrhage [None]
  - Uterine pain [None]
  - Menorrhagia [None]

NARRATIVE: CASE EVENT DATE: 20140320
